FAERS Safety Report 14757889 (Version 1)
Quarter: 2018Q2

REPORT INFORMATION
  Report Type: Spontaneous
  Country: US (occurrence: US)
  Receive Date: 20180413
  Receipt Date: 20180413
  Transmission Date: 20180711
  Serious: Yes (Death)
  Sender: FDA-Public Use
  Company Number: US-FRESENIUS KABI-FK201804522

PATIENT
  Age: 71 Year
  Sex: Male

DRUGS (4)
  1. RUXOLITINIB [Suspect]
     Active Substance: RUXOLITINIB
     Indication: CHRONIC MYELOMONOCYTIC LEUKAEMIA
     Route: 065
  2. HYDROXYCARBAMIDE [Suspect]
     Active Substance: HYDROXYUREA
     Indication: CHRONIC MYELOMONOCYTIC LEUKAEMIA
     Route: 065
  3. CYTARABINE (MANUFACTURER UNKNOWN) [Suspect]
     Active Substance: CYTARABINE
     Indication: CHRONIC MYELOMONOCYTIC LEUKAEMIA
     Route: 065
  4. AZACITIDINE. [Suspect]
     Active Substance: AZACITIDINE
     Indication: CHRONIC MYELOMONOCYTIC LEUKAEMIA
     Route: 065

REACTIONS (2)
  - Cardiac tamponade [Fatal]
  - Cryptococcosis [Fatal]
